FAERS Safety Report 12531350 (Version 14)
Quarter: 2016Q4

REPORT INFORMATION
  Report Type: Spontaneous
  Country: PT (occurrence: PT)
  Receive Date: 20160706
  Receipt Date: 20161214
  Transmission Date: 20170207
  Serious: Yes (Death)
  Sender: FDA-Public Use
  Company Number: PHHY2016PT091432

PATIENT
  Age: 72 Year
  Sex: Female

DRUGS (1)
  1. DICLOFENAC [Suspect]
     Active Substance: DICLOFENAC
     Indication: PYREXIA
     Dosage: 75 MG/ 3 ML INTO RIGHT THIGH
     Route: 058

REACTIONS (7)
  - Product use issue [Unknown]
  - Injection site erythema [Fatal]
  - Blister [Fatal]
  - Skin exfoliation [Fatal]
  - Injection site necrosis [Fatal]
  - Purpura [Fatal]
  - Rash [Fatal]
